FAERS Safety Report 6636759-2 (Version None)
Quarter: 2010Q1

REPORT INFORMATION
  Report Type: 
  Country: None (occurrence: None)
  Receive Date: 20100316
  Receipt Date: 20100308
  Transmission Date: 20100710
  Serious: Yes (Hospitalization, Other)
  Sender: FDA-Public Use
  Company Number: CHPA2010US04767

PATIENT
  Age: 40 Year
  Sex: Female

DRUGS (2)
  1. PRIVATE LABEL (NCH) [Suspect]
     Indication: SMOKING CESSATION THERAPY
     Dosage: 14 MG, QD
     Route: 062
     Dates: start: 20100101, end: 20100101
  2. PRIVATE LABEL (NCH) [Suspect]
     Dosage: UNK, UNK
     Route: 062

REACTIONS (5)
  - CARDIAC VALVE DISEASE [None]
  - LUNG INFECTION [None]
  - LYMPHADENOPATHY [None]
  - MALAISE [None]
  - RESPIRATORY ARREST [None]
